FAERS Safety Report 14195185 (Version 2)
Quarter: 2018Q1

REPORT INFORMATION
  Report Type: Spontaneous
  Country: DE (occurrence: DE)
  Receive Date: 20171116
  Receipt Date: 20180308
  Transmission Date: 20180508
  Serious: Yes (Other)
  Sender: FDA-Public Use
  Company Number: DE-PFIZER INC-2017485183

PATIENT
  Age: 72 Year
  Sex: Female

DRUGS (1)
  1. TOLTERODIN PFIZER [Suspect]
     Active Substance: TOLTERODINE TARTRATE
     Dosage: 4 MG, UNK

REACTIONS (2)
  - Drug effect decreased [Unknown]
  - Cystitis [Unknown]
